FAERS Safety Report 10060658 (Version 1)
Quarter: 2014Q2

REPORT INFORMATION
  Report Type: Report from Study
  Country: US (occurrence: US)
  Receive Date: 20140404
  Receipt Date: 20140404
  Transmission Date: 20141212
  Serious: Yes (Hospitalization, Other)
  Sender: FDA-Public Use
  Company Number: US-GILEAD-2014-0098480

PATIENT
  Sex: Male

DRUGS (1)
  1. TENOFOVIR DISOPROXIL FUMARATE [Suspect]
     Indication: CHRONIC HEPATITIS B
     Dosage: 300 MG, UNK
     Route: 065
     Dates: end: 201402

REACTIONS (3)
  - Pneumonia [Unknown]
  - Liver transplant [Unknown]
  - Malaise [Unknown]
